FAERS Safety Report 14548014 (Version 1)
Quarter: 2018Q1

REPORT INFORMATION
  Report Type: Spontaneous
  Country: FR (occurrence: FR)
  Receive Date: 20180219
  Receipt Date: 20180219
  Transmission Date: 20180509
  Serious: Yes (Hospitalization)
  Sender: FDA-Public Use
  Company Number: FR-TEVA-2018-FR-857021

PATIENT
  Age: 72 Year
  Sex: Female

DRUGS (5)
  1. PARACETAMOL [Suspect]
     Active Substance: ACETAMINOPHEN
     Indication: BRONCHITIS
     Route: 048
     Dates: start: 20171110, end: 20171116
  2. AMOXICILLINE [Suspect]
     Active Substance: AMOXICILLIN
     Indication: BRONCHITIS
     Route: 048
     Dates: start: 20171110, end: 20171116
  3. SPASFON [Suspect]
     Active Substance: PHLOROGLUCINOL\1,3,5-TRIMETHOXYBENZENE
     Indication: PRODUCT USED FOR UNKNOWN INDICATION
     Route: 048
     Dates: start: 20171110, end: 20171113
  4. TUSSIDANE [Suspect]
     Active Substance: DEXTROMETHORPHAN HYDROBROMIDE
     Indication: BRONCHITIS
     Route: 048
     Dates: start: 20171110, end: 20171113
  5. SOLUPRED (PREDNISOLONE) [Suspect]
     Active Substance: PREDNISOLONE
     Indication: BRONCHITIS
     Route: 048
     Dates: start: 20171110, end: 20171116

REACTIONS (2)
  - Erythema multiforme [Recovering/Resolving]
  - Rash papular [Recovering/Resolving]

NARRATIVE: CASE EVENT DATE: 20171116
